FAERS Safety Report 16198328 (Version 2)
Quarter: 2019Q2

REPORT INFORMATION
  Report Type: Report from Study
  Country: US (occurrence: US)
  Receive Date: 20190415
  Receipt Date: 20190424
  Transmission Date: 20190711
  Serious: No
  Sender: FDA-Public Use
  Company Number: US-BAYER-2019-074502

PATIENT
  Sex: Female

DRUGS (1)
  1. BETASERON [Suspect]
     Active Substance: INTERFERON BETA-1B
     Indication: GAIT DISTURBANCE
     Dosage: 0.3 MG THREE TIMES A WEEK
     Route: 058
     Dates: start: 20160109

REACTIONS (2)
  - Product dose omission [Not Recovered/Not Resolved]
  - Product use in unapproved indication [None]
